FAERS Safety Report 11409666 (Version 9)
Quarter: 2020Q1

REPORT INFORMATION
  Report Type: Report from Study
  Country: US (occurrence: US)
  Receive Date: 20150824
  Receipt Date: 20200225
  Transmission Date: 20200409
  Serious: Yes (Other)
  Sender: FDA-Public Use
  Company Number: PHHY2014US134483

PATIENT
  Age: 39 Year
  Sex: Male

DRUGS (2)
  1. GILENYA [Suspect]
     Active Substance: FINGOLIMOD HYDROCHLORIDE
     Indication: MULTIPLE SCLEROSIS
     Dosage: UNK, QD
     Route: 048
  2. VALIUM [Concomitant]
     Active Substance: DIAZEPAM
     Indication: PRODUCT USED FOR UNKNOWN INDICATION
     Dosage: UNK
     Route: 065
     Dates: start: 20180405

REACTIONS (14)
  - Sinus arrhythmia [Recovered/Resolved]
  - Sunburn [Unknown]
  - Nasopharyngitis [Unknown]
  - Back pain [Unknown]
  - Nausea [Recovered/Resolved]
  - Alanine aminotransferase increased [Unknown]
  - Fatigue [Unknown]
  - Blood creatine decreased [Unknown]
  - Extensor plantar response [Unknown]
  - Sinus bradycardia [Recovered/Resolved]
  - Aspartate aminotransferase increased [Unknown]
  - Lymphocyte count decreased [Unknown]
  - Sinus bradycardia [Recovered/Resolved]
  - Musculoskeletal disorder [Unknown]

NARRATIVE: CASE EVENT DATE: 20140729
